FAERS Safety Report 21766201 (Version 1)
Quarter: 2022Q4

REPORT INFORMATION
  Report Type: Spontaneous
  Country: US (occurrence: US)
  Receive Date: 20221222
  Receipt Date: 20221222
  Transmission Date: 20230113
  Serious: Yes (Death, Hospitalization)
  Sender: FDA-Public Use
  Company Number: US-MYLANLABS-2022M1145395

PATIENT
  Age: 3 Year
  Sex: Male

DRUGS (21)
  1. DOXORUBICIN [Suspect]
     Active Substance: DOXORUBICIN
     Indication: Chemotherapy
     Dosage: UNK
     Route: 065
  2. DOXORUBICIN [Suspect]
     Active Substance: DOXORUBICIN
     Indication: Fibrosarcoma metastatic
     Dosage: UNK, CYCLE; 21-DAY CYCLE WITH IFOSFAMIDE
     Route: 065
  3. DOXORUBICIN [Suspect]
     Active Substance: DOXORUBICIN
     Indication: Epithelioid sarcoma metastatic
  4. IFOSFAMIDE [Suspect]
     Active Substance: IFOSFAMIDE
     Indication: Fibrosarcoma metastatic
     Dosage: UNK, CYCLE; 21 DAY CYCLE
     Route: 065
  5. IFOSFAMIDE [Suspect]
     Active Substance: IFOSFAMIDE
     Indication: Epithelioid sarcoma metastatic
  6. DOCETAXEL [Suspect]
     Active Substance: DOCETAXEL
     Indication: Fibrosarcoma metastatic
     Dosage: UNK
     Route: 065
  7. DOCETAXEL [Suspect]
     Active Substance: DOCETAXEL
     Indication: Epithelioid sarcoma metastatic
  8. TEMOZOLOMIDE [Suspect]
     Active Substance: TEMOZOLOMIDE
     Indication: Epithelioid sarcoma metastatic
     Dosage: UNK UNK, CYCLE
     Route: 065
  9. TEMOZOLOMIDE [Suspect]
     Active Substance: TEMOZOLOMIDE
     Indication: Fibrosarcoma metastatic
  10. GEMCITABINE [Suspect]
     Active Substance: GEMCITABINE
     Indication: Fibrosarcoma metastatic
     Dosage: UNK
     Route: 065
  11. GEMCITABINE [Suspect]
     Active Substance: GEMCITABINE
     Indication: Epithelioid sarcoma metastatic
  12. CYCLOPHOSPHAMIDE [Suspect]
     Active Substance: CYCLOPHOSPHAMIDE
     Indication: Chemotherapy
     Dosage: UNK
     Route: 065
  13. VINCRISTINE [Suspect]
     Active Substance: VINCRISTINE
     Indication: Chemotherapy
     Dosage: UNK
     Route: 065
  14. PAZOPANIB [Suspect]
     Active Substance: PAZOPANIB
     Indication: Fibrosarcoma metastatic
     Dosage: UNK
     Route: 065
  15. PAZOPANIB [Suspect]
     Active Substance: PAZOPANIB
     Indication: Epithelioid sarcoma metastatic
  16. TRABECTEDIN [Suspect]
     Active Substance: TRABECTEDIN
     Indication: Fibrosarcoma metastatic
     Dosage: UNK UNK, CYCLE
     Route: 065
  17. TRABECTEDIN [Suspect]
     Active Substance: TRABECTEDIN
     Indication: Epithelioid sarcoma metastatic
  18. PEVONEDISTAT [Suspect]
     Active Substance: PEVONEDISTAT
     Indication: Fibrosarcoma metastatic
     Dosage: UNK UNK, CYCLE
     Route: 065
  19. PEVONEDISTAT [Suspect]
     Active Substance: PEVONEDISTAT
     Indication: Epithelioid sarcoma metastatic
  20. IRINOTECAN [Suspect]
     Active Substance: IRINOTECAN
     Indication: Fibrosarcoma metastatic
     Dosage: UNK UNK, CYCLE
     Route: 065
  21. IRINOTECAN [Suspect]
     Active Substance: IRINOTECAN
     Indication: Epithelioid sarcoma metastatic

REACTIONS (2)
  - Drug ineffective [Fatal]
  - Disease progression [Fatal]
